FAERS Safety Report 13616658 (Version 1)
Quarter: 2017Q2

REPORT INFORMATION
  Report Type: Spontaneous
  Country: US (occurrence: US)
  Receive Date: 20170606
  Receipt Date: 20170606
  Transmission Date: 20170830
  Serious: No
  Sender: FDA-Public Use
  Company Number: US-SA-2016SA106384

PATIENT
  Age: 59 Year
  Sex: Male

DRUGS (3)
  1. SOLOSTAR [Suspect]
     Active Substance: DEVICE
     Indication: TYPE 2 DIABETES MELLITUS
     Dates: start: 2015
  2. HUMALOG [Concomitant]
     Active Substance: INSULIN LISPRO
  3. LANTUS SOLOSTAR [Suspect]
     Active Substance: INSULIN GLARGINE
     Indication: TYPE 2 DIABETES MELLITUS
     Dosage: DOSE:55-60 UNITS
     Route: 065
     Dates: start: 2015

REACTIONS (7)
  - Blood glucose increased [Unknown]
  - Device issue [Unknown]
  - Feeling abnormal [Unknown]
  - Visual impairment [Unknown]
  - Intentional product misuse [Unknown]
  - Fatigue [Unknown]
  - Laziness [Unknown]

NARRATIVE: CASE EVENT DATE: 20160601
